FAERS Safety Report 5843948-3 (Version None)
Quarter: 2008Q3

REPORT INFORMATION
  Report Type: 
  Country: None (occurrence: None)
  Receive Date: 20080808
  Receipt Date: 20080729
  Transmission Date: 20090109
  Serious: Yes (Death, Hospitalization, Other)
  Sender: FDA-Public Use
  Company Number: 50917

PATIENT
  Age: 43 Year
  Sex: Female
  Weight: 64 kg

DRUGS (1)
  1. ETOPOSIDE [Suspect]
     Indication: SMALL CELL LUNG CANCER STAGE UNSPECIFIED
     Dosage: 160MG IV
     Route: 030
     Dates: start: 20071022

REACTIONS (5)
  - ANOREXIA [None]
  - ASTHENIA [None]
  - PERFORMANCE STATUS DECREASED [None]
  - SUDDEN DEATH [None]
  - WEIGHT DECREASED [None]
